FAERS Safety Report 11812301 (Version 2)
Quarter: 2015Q4

REPORT INFORMATION
  Report Type: Report from Study
  Country: US (occurrence: US)
  Receive Date: 20151208
  Receipt Date: 20151229
  Transmission Date: 20160305
  Serious: No
  Sender: FDA-Public Use
  Company Number: US-009507513-1512USA004488

PATIENT
  Age: 48 Year
  Sex: Male

DRUGS (3)
  1. REBETOL [Suspect]
     Active Substance: RIBAVIRIN
     Indication: CHRONIC HEPATITIS C
     Dosage: 1000 MG DAILY WITH BODY WEIGHT {75KG AND 1200 MG DAILY WITH BODY WEIGHT }=75 KG
     Route: 048
  2. SOFOSBUVIR [Suspect]
     Active Substance: SOFOSBUVIR
     Indication: CHRONIC HEPATITIS C
     Dosage: 400 MG DAILY, ORALLY
     Route: 048
  3. VELPATASVIR [Suspect]
     Active Substance: VELPATASVIR
     Indication: CHRONIC HEPATITIS C
     Dosage: 100 MG DAILY, ORALLY
     Route: 048

REACTIONS (2)
  - Hepatitis C [Unknown]
  - Virologic failure [Unknown]
